FAERS Safety Report 9444845 (Version 2)
Quarter: 2013Q3

REPORT INFORMATION
  Report Type: Report from Study
  Country: US (occurrence: US)
  Receive Date: 20130807
  Receipt Date: 20130809
  Transmission Date: 20140515
  Serious: Yes (Hospitalization)
  Sender: FDA-Public Use
  Company Number: US-BAXTER-2013BAX030860

PATIENT
  Age: 13 Year
  Sex: Female
  Weight: 33 kg

DRUGS (9)
  1. GAMMAGARD LIQUID [Suspect]
     Indication: HYPOGLOBULINAEMIA
     Route: 042
     Dates: start: 201205
  2. ORAPRED [Concomitant]
     Indication: PREMEDICATION
     Route: 048
  3. TYLENOL [Concomitant]
     Indication: PROPHYLAXIS
     Route: 048
  4. SYMBICORT [Concomitant]
     Indication: PRODUCT USED FOR UNKNOWN INDICATION
     Dosage: 80/4.5
     Route: 055
  5. SINGULAIR [Concomitant]
     Indication: PRODUCT USED FOR UNKNOWN INDICATION
     Route: 048
  6. SULFATE [Concomitant]
     Indication: PRODUCT USED FOR UNKNOWN INDICATION
     Route: 048
  7. NEXIUM [Concomitant]
     Indication: PRODUCT USED FOR UNKNOWN INDICATION
     Route: 048
  8. MACRODANTIN [Concomitant]
     Indication: PRODUCT USED FOR UNKNOWN INDICATION
     Route: 048
  9. TOPAMAX [Concomitant]
     Indication: PRODUCT USED FOR UNKNOWN INDICATION
     Route: 048

REACTIONS (2)
  - Clostridium difficile infection [Recovering/Resolving]
  - Pyrexia [Recovered/Resolved]
